FAERS Safety Report 26180635 (Version 1)
Quarter: 2025Q4

REPORT INFORMATION
  Report Type: Spontaneous
  Country: CN (occurrence: CN)
  Receive Date: 20251219
  Receipt Date: 20251219
  Transmission Date: 20260118
  Serious: Yes (Hospitalization)
  Sender: EISAI
  Company Number: CN-Eisai-EC-2025-201858

PATIENT
  Age: 58 Year
  Sex: Female
  Weight: 45 kg

DRUGS (1)
  1. LENVATINIB [Suspect]
     Active Substance: LENVATINIB
     Indication: Malignant neoplasm of thymus
     Route: 048
     Dates: start: 20240908

REACTIONS (2)
  - Osteomyelitis [Recovering/Resolving]
  - Cellulitis [Recovering/Resolving]

NARRATIVE: CASE EVENT DATE: 20251101
